FAERS Safety Report 17616946 (Version 1)
Quarter: 2020Q2

REPORT INFORMATION
  Report Type: Spontaneous
  Country: US (occurrence: US)
  Receive Date: 20200402
  Receipt Date: 20200402
  Transmission Date: 20200713
  Serious: Yes (Other)
  Sender: FDA-Public Use
  Company Number: None

PATIENT

DRUGS (1)
  1. TRAVOPROST. [Suspect]
     Active Substance: TRAVOPROST

REACTIONS (2)
  - Erythema [None]
  - Burning sensation [None]

NARRATIVE: CASE EVENT DATE: 20200402
